FAERS Safety Report 7480592-9 (Version None)
Quarter: 2011Q2

REPORT INFORMATION
  Report Type: 
  Country: None (occurrence: None)
  Receive Date: 20110516
  Receipt Date: 20110506
  Transmission Date: 20111010
  Serious: Yes (Other)
  Sender: FDA-Public Use
  Company Number: PHFR2011GB01531

PATIENT
  Sex: Female

DRUGS (1)
  1. CLOZARIL [Suspect]
     Indication: BORDERLINE PERSONALITY DISORDER
     Dosage: 275 MG, QD
     Route: 048
     Dates: start: 20100726, end: 20110223

REACTIONS (4)
  - SNORING [None]
  - WEIGHT INCREASED [None]
  - DIABETES MELLITUS [None]
  - SLEEP APNOEA SYNDROME [None]
